FAERS Safety Report 5811503-7 (Version None)
Quarter: 2008Q3

REPORT INFORMATION
  Report Type: 
  Country: None (occurrence: None)
  Receive Date: 20080714
  Receipt Date: 20080702
  Transmission Date: 20090109
  Serious: Yes (Hospitalization)
  Sender: FDA-Public Use
  Company Number: CIP08000996

PATIENT
  Age: 82 Year
  Sex: Female

DRUGS (2)
  1. RISEDRONATE SODIUM [Suspect]
     Indication: OSTEOPOROSIS
     Dosage: 2.5 MG DAILY, ORAL
     Route: 048
     Dates: start: 20080502
  2. GLUCOCORTICOIDS() [Suspect]
     Indication: RHEUMATOID ARTHRITIS
     Dosage: ORAL
     Route: 048

REACTIONS (6)
  - CELLULITIS [None]
  - HYPOPHAGIA [None]
  - OSTEOMYELITIS [None]
  - STREPTOCOCCAL IDENTIFICATION TEST POSITIVE [None]
  - SWELLING FACE [None]
  - TOOTH EXTRACTION [None]
